FAERS Safety Report 4748542-3 (Version None)
Quarter: 2005Q3

REPORT INFORMATION
  Report Type: 
  Country: None (occurrence: None)
  Receive Date: 20050819
  Receipt Date: 20050809
  Transmission Date: 20060218
  Serious: Yes (Hospitalization)
  Sender: FDA-Public Use
  Company Number: DE-BOEHRINGER INGELHEIM PHARMACEUTICALS, INC.-2005-DE-03124GD

PATIENT
  Age: 51 Year
  Sex: Female

DRUGS (4)
  1. CLONIDINE [Suspect]
     Indication: BACK PAIN
     Route: 037
     Dates: start: 19950101
  2. CLONIDINE [Suspect]
     Route: 037
  3. MORPHINE [Suspect]
     Indication: BACK PAIN
     Route: 037
     Dates: start: 19950101
  4. HYDROMORPHONE [Suspect]
     Indication: BACK PAIN
     Dosage: UP TO 80 MG
     Route: 048

REACTIONS (8)
  - CATHETER RELATED COMPLICATION [None]
  - CEREBROSPINAL FLUID LEAKAGE [None]
  - DEVICE MALFUNCTION [None]
  - DRUG INEFFECTIVE [None]
  - HEADACHE [None]
  - PAIN [None]
  - PIRIFORMIS SYNDROME [None]
  - PYREXIA [None]
